FAERS Safety Report 7928644-0 (Version None)
Quarter: 2011Q4

REPORT INFORMATION
  Report Type: 
  Country: None (occurrence: None)
  Receive Date: 20111118
  Receipt Date: 20111108
  Transmission Date: 20120403
  Serious: Yes (Hospitalization, Other)
  Sender: FDA-Public Use
  Company Number: GB-ABBOTT-11P-167-0836094-00

PATIENT
  Age: 45 Year
  Sex: Male

DRUGS (6)
  1. MORPHINE [Concomitant]
     Indication: ARTHRALGIA
     Dates: start: 20070401
  2. HUMIRA [Suspect]
     Indication: PSORIASIS
     Route: 058
     Dates: start: 20100713, end: 20110614
  3. OMACOR [Concomitant]
     Indication: HYPERLIPIDAEMIA
     Dates: start: 20090528
  4. FENOFIBRATE [Concomitant]
     Indication: HYPERLIPIDAEMIA
     Dates: start: 20090101
  5. ORAMORPH SR [Concomitant]
     Indication: ARTHRALGIA
     Dates: start: 20070101
  6. HUMIRA [Concomitant]
     Indication: PRODUCT USED FOR UNKNOWN INDICATION
     Route: 058
     Dates: start: 20080428

REACTIONS (2)
  - APPENDICEAL ABSCESS [None]
  - STREPTOCOCCAL INFECTION [None]
